FAERS Safety Report 13230920 (Version 2)
Quarter: 2017Q1

REPORT INFORMATION
  Report Type: Other
  Country: CZ (occurrence: CZ)
  Receive Date: 20170214
  Receipt Date: 20170302
  Transmission Date: 20170428
  Serious: Yes (Hospitalization)
  Sender: FDA-Public Use
  Company Number: CZ-SYMPLMED PHARMACEUTICALS-2017SYMPLMED000416

PATIENT

DRUGS (1)
  1. PRESTARIUM NEO [Suspect]
     Active Substance: PERINDOPRIL ARGININE
     Indication: PRODUCT USED FOR UNKNOWN INDICATION
     Dosage: 5 MG, QD (IN THE MORNING BEFORE THE BREAKFAST)
     Route: 065
     Dates: start: 201610

REACTIONS (8)
  - Dizziness [Recovering/Resolving]
  - Circulatory collapse [Recovered/Resolved]
  - Formication [Recovering/Resolving]
  - Insomnia [Recovering/Resolving]
  - Nausea [Unknown]
  - Headache [Recovering/Resolving]
  - Erythema [Unknown]
  - Pruritus [Recovering/Resolving]

NARRATIVE: CASE EVENT DATE: 20161106
